FAERS Safety Report 25015695 (Version 1)
Quarter: 2025Q1

REPORT INFORMATION
  Report Type: Spontaneous
  Country: GB (occurrence: GB)
  Receive Date: 20250227
  Receipt Date: 20250227
  Transmission Date: 20250409
  Serious: Yes (Other)
  Sender: TEVA
  Company Number: GB-MHRA-TPP51141180C10200614YC1739893518214

PATIENT
  Age: 67 Year
  Sex: Male
  Weight: 79 kg

DRUGS (4)
  1. MONTELUKAST [Suspect]
     Active Substance: MONTELUKAST
     Indication: Ill-defined disorder
     Route: 048
     Dates: start: 19000101
  2. ALBUTEROL [Concomitant]
     Active Substance: ALBUTEROL
     Indication: Ill-defined disorder
     Dates: start: 20241217
  3. EDOXABAN [Concomitant]
     Active Substance: EDOXABAN
     Indication: Ill-defined disorder
     Dates: start: 20241001
  4. SOTALOL [Concomitant]
     Active Substance: SOTALOL
     Indication: Ill-defined disorder
     Dates: start: 20241022

REACTIONS (1)
  - Depressed mood [Recovered/Resolved]

NARRATIVE: CASE EVENT DATE: 19000101
